FAERS Safety Report 21133485 (Version 2)
Quarter: 2023Q1

REPORT INFORMATION
  Report Type: Spontaneous
  Country: CN (occurrence: CN)
  Receive Date: 20220726
  Receipt Date: 20230222
  Transmission Date: 20230418
  Serious: Yes (Hospitalization)
  Sender: FDA-Public Use
  Company Number: CN-NOVARTISPH-NVSC2022CN168312

PATIENT
  Age: 62 Year
  Sex: Male
  Weight: 83 kg

DRUGS (3)
  1. BENAZEPRIL HYDROCHLORIDE [Suspect]
     Active Substance: BENAZEPRIL HYDROCHLORIDE
     Indication: Coronary artery disease
     Dosage: 10 MG, QD
     Route: 048
     Dates: start: 20220709, end: 20220713
  2. METFORMIN HYDROCHLORIDE [Suspect]
     Active Substance: METFORMIN HYDROCHLORIDE
     Indication: Diabetes mellitus
     Dosage: 0.25 G, TID
     Route: 048
     Dates: start: 20220709, end: 20220713
  3. IOPROMIDE [Suspect]
     Active Substance: IOPROMIDE
     Indication: Angiocardiogram
     Dosage: 76.89 G, QD
     Route: 013
     Dates: start: 20220711, end: 20220711

REACTIONS (2)
  - Rash [Recovering/Resolving]
  - Pruritus [Recovered/Resolved]

NARRATIVE: CASE EVENT DATE: 20220712
